FAERS Safety Report 7850979-0 (Version None)
Quarter: 2011Q4

REPORT INFORMATION
  Report Type: 
  Country: None (occurrence: None)
  Receive Date: 20111024
  Receipt Date: 20111017
  Transmission Date: 20120403
  Serious: Yes (Hospitalization)
  Sender: FDA-Public Use
  Company Number: AUR-APL-2011-02958

PATIENT
  Age: 43 Year
  Sex: Female
  Weight: 67 kg

DRUGS (2)
  1. CITALOPRAM HYDROBROMIDE [Suspect]
     Indication: DEPRESSION
     Dosage: (10 MG) (20 MG)
     Dates: start: 20110407
  2. CANDESARTAN CILEXETIL [Concomitant]

REACTIONS (7)
  - RUBELLA ANTIBODY POSITIVE [None]
  - ELECTROCARDIOGRAM ABNORMAL [None]
  - BACK PAIN [None]
  - AGITATION [None]
  - MALAISE [None]
  - ACUTE PSYCHOSIS [None]
  - ABSCESS DRAINAGE [None]
